FAERS Safety Report 6543214-7 (Version None)
Quarter: 2010Q1

REPORT INFORMATION
  Report Type: 
  Country: None (occurrence: None)
  Receive Date: 20100120
  Receipt Date: 20100112
  Transmission Date: 20100710
  Serious: Yes (Disabling, Other)
  Sender: FDA-Public Use
  Company Number: US-PFIZER INC-2010005656

PATIENT
  Sex: Female
  Weight: 56.2 kg

DRUGS (2)
  1. OGEN [Suspect]
     Indication: HORMONE REPLACEMENT THERAPY
     Dosage: 1.25 MG, 1X/DAY
     Dates: start: 19830101, end: 20030101
  2. OGEN [Suspect]
     Dosage: 0.625 MG, 1X/DAY
     Dates: start: 20030101, end: 20090101

REACTIONS (1)
  - SYSTEMIC LUPUS ERYTHEMATOSUS [None]
